FAERS Safety Report 24382803 (Version 1)
Quarter: 2024Q4

REPORT INFORMATION
  Report Type: Spontaneous
  Country: BE (occurrence: BE)
  Receive Date: 20241001
  Receipt Date: 20241001
  Transmission Date: 20250115
  Serious: Yes (Death, Other)
  Sender: AMGEN
  Company Number: BE-AMGEN-BELSP2024192410

PATIENT
  Age: 71 Year
  Sex: Female

DRUGS (2)
  1. XGEVA [Suspect]
     Active Substance: DENOSUMAB
     Indication: Metastases to bone
     Dosage: UNK
     Route: 065
  2. ANASTROZOLE [Concomitant]
     Active Substance: ANASTROZOLE
     Indication: Metastases to bone
     Dosage: UNK
     Route: 065

REACTIONS (4)
  - Invasive ductal breast carcinoma [Fatal]
  - Metastases to liver [Unknown]
  - Cataract [Unknown]
  - Palmar-plantar erythrodysaesthesia syndrome [Recovered/Resolved]
